FAERS Safety Report 12378393 (Version 1)
Quarter: 2016Q2

REPORT INFORMATION
  Report Type: Spontaneous
  Country: US (occurrence: US)
  Receive Date: 20160517
  Receipt Date: 20160517
  Transmission Date: 20160815
  Serious: Yes (Other)
  Sender: FDA-Public Use
  Company Number: US-ABBVIE-16P-163-1567515-00

PATIENT
  Sex: Female

DRUGS (3)
  1. PREMARIN [Suspect]
     Active Substance: ESTROGENS, CONJUGATED
     Indication: HORMONE REPLACEMENT THERAPY
     Route: 048
     Dates: end: 2005
  2. ENOVID [Suspect]
     Active Substance: MESTRANOL\NORETHYNODREL
     Indication: CONTRACEPTION
     Dosage: ESTROGEN PILL FOR YEARS
     Route: 065
  3. PROMETRIUM [Suspect]
     Active Substance: PROGESTERONE
     Indication: HORMONE REPLACEMENT THERAPY
     Route: 048
     Dates: end: 2006

REACTIONS (7)
  - Breast pain [Unknown]
  - Breast cancer [Unknown]
  - Vulvovaginal dryness [Unknown]
  - Fluid retention [Unknown]
  - Breast swelling [Unknown]
  - Vaginal disorder [Unknown]
  - Breast atrophy [Unknown]
